FAERS Safety Report 9185803 (Version 2)
Quarter: 2013Q2

REPORT INFORMATION
  Report Type: Spontaneous
  Country: US (occurrence: US)
  Receive Date: 20130325
  Receipt Date: 20130524
  Transmission Date: 20140414
  Serious: No
  Sender: FDA-Public Use
  Company Number: US-009507513-1303USA009493

PATIENT
  Sex: Female

DRUGS (3)
  1. RIZATRIPTAN BENZOATE [Suspect]
     Indication: MIGRAINE
     Route: 048
  2. MAXALT [Suspect]
     Indication: MIGRAINE
     Dosage: 10 MG, UNK
     Route: 048
  3. LORAZEPAM [Concomitant]

REACTIONS (3)
  - Drug ineffective [Unknown]
  - Vomiting [Recovered/Resolved]
  - Wrong technique in drug usage process [Unknown]
